FAERS Safety Report 6506017-5 (Version None)
Quarter: 2009Q4

REPORT INFORMATION
  Report Type: 
  Country: None (occurrence: None)
  Receive Date: 20091217
  Receipt Date: 20091217
  Transmission Date: 20100525
  Serious: Yes (Hospitalization)
  Sender: FDA-Public Use
  Company Number: None

PATIENT
  Age: 63 Year
  Sex: Male
  Weight: 131.2 kg

DRUGS (1)
  1. CARBOPLATIN [Suspect]
     Indication: NEOPLASM
     Dosage: 580 MG ONCE IV
     Route: 042
     Dates: start: 20091201, end: 20091201

REACTIONS (1)
  - FEBRILE NEUTROPENIA [None]
